FAERS Safety Report 7549326-3 (Version None)
Quarter: 2011Q2

REPORT INFORMATION
  Report Type: 
  Country: None (occurrence: None)
  Receive Date: 20110615
  Receipt Date: 20020129
  Transmission Date: 20111010
  Serious: Yes (Hospitalization)
  Sender: FDA-Public Use
  Company Number: PHEH2002US01226

PATIENT
  Sex: Female

DRUGS (3)
  1. POTASSIUM CHLORIDE [Concomitant]
  2. LASIX [Concomitant]
  3. EXELON [Suspect]
     Dosage: 6 MG, BID
     Dates: start: 20010607

REACTIONS (7)
  - APHASIA [None]
  - DYSPNOEA [None]
  - CEREBRAL THROMBOSIS [None]
  - HEMIPARESIS [None]
  - CEREBROVASCULAR ACCIDENT [None]
  - ATRIAL FIBRILLATION [None]
  - CARDIAC FAILURE CONGESTIVE [None]
